FAERS Safety Report 6271300-8 (Version None)
Quarter: 2009Q3

REPORT INFORMATION
  Report Type: 
  Country: None (occurrence: None)
  Receive Date: 20090717
  Receipt Date: 20090709
  Transmission Date: 20100115
  Serious: Yes (Hospitalization)
  Sender: FDA-Public Use
  Company Number: CH-JNJFOC-20090608126

PATIENT
  Sex: Female
  Weight: 75 kg

DRUGS (7)
  1. TOPAMAX [Suspect]
     Route: 048
  2. TOPAMAX [Suspect]
     Indication: EPILEPSY
     Route: 048
  3. KEPPRA [Suspect]
     Indication: EPILEPSY
     Route: 065
  4. PANTOZOL [Concomitant]
     Indication: GASTROINTESTINAL DISORDER THERAPY
     Route: 048
  5. CELEBREX [Concomitant]
     Indication: HEADACHE
     Route: 048
  6. BURGERSTEIN EISEN PLUS [Concomitant]
     Route: 048
  7. CYMBALTA [Concomitant]
     Indication: MOOD ALTERED
     Route: 048

REACTIONS (13)
  - ASTHENIA [None]
  - CHILLS [None]
  - DISTURBANCE IN ATTENTION [None]
  - DIZZINESS [None]
  - EPISTAXIS [None]
  - FATIGUE [None]
  - GAIT DISTURBANCE [None]
  - HEADACHE [None]
  - HOSPITALISATION [None]
  - MOOD ALTERED [None]
  - MUCOSAL DRYNESS [None]
  - PARAESTHESIA [None]
  - SOMNOLENCE [None]
